FAERS Safety Report 5848672-9 (Version None)
Quarter: 2008Q3

REPORT INFORMATION
  Report Type: 
  Country: None (occurrence: None)
  Receive Date: 20080814
  Receipt Date: 20080708
  Transmission Date: 20090109
  Serious: Yes (Hospitalization)
  Sender: FDA-Public Use
  Company Number: 14964

PATIENT
  Age: 65 Year
  Sex: Male
  Weight: 77.1115 kg

DRUGS (5)
  1. MORPHINE SULFATE [Suspect]
     Indication: NEURALGIA
     Dosage: 60 MG BID ORALLY
     Route: 048
     Dates: start: 20010101
  2. METOPROLOL TARTRATE [Concomitant]
  3. INSULIN [Concomitant]
  4. COMBIVENT [Concomitant]
  5. LIPITOR [Concomitant]

REACTIONS (4)
  - AMNESIA [None]
  - FALL [None]
  - HIP FRACTURE [None]
  - PHARMACEUTICAL PRODUCT COMPLAINT [None]
